FAERS Safety Report 4767245-2 (Version None)
Quarter: 2005Q3

REPORT INFORMATION
  Report Type: 
  Country: None (occurrence: None)
  Receive Date: 20050909
  Receipt Date: 20050909
  Transmission Date: 20060218
  Serious: Yes (Hospitalization)
  Sender: FDA-Public Use
  Company Number: None

PATIENT
  Sex: Male
  Weight: 88.5 kg

DRUGS (10)
  1. NAVELBINE [Suspect]
     Indication: NON-SMALL CELL LUNG CANCER
     Dosage: 5MG/M2 Q M-W-F (IV)
     Route: 042
     Dates: start: 20050525, end: 20050630
  2. THALIDOMIDE [Suspect]
     Indication: NON-SMALL CELL LUNG CANCER
     Dosage: 50 MG QHS (PO)
     Route: 048
     Dates: start: 20050524, end: 20050630
  3. ACIPHEX [Concomitant]
  4. NITROSTAT [Concomitant]
  5. TOPROL-XL [Concomitant]
  6. LORAZEPAM [Concomitant]
  7. LIPITOR [Concomitant]
  8. MIRALAX [Concomitant]
  9. COUMADIN [Concomitant]
  10. OXYCODONE [Concomitant]

REACTIONS (1)
  - OESOPHAGITIS [None]
